FAERS Safety Report 14973411 (Version 2)
Quarter: 2019Q1

REPORT INFORMATION
  Report Type: Spontaneous
  Country: JP (occurrence: JP)
  Receive Date: 20180605
  Receipt Date: 20190205
  Transmission Date: 20190417
  Serious: Yes (Hospitalization, Other)
  Sender: FDA-Public Use
  Company Number: JP-SAKK-2018SA142476AA

PATIENT
  Age: 71 Year
  Sex: Female

DRUGS (2)
  1. TRASTUZUMAB. [Suspect]
     Active Substance: TRASTUZUMAB
     Indication: CHEMOTHERAPY
     Dosage: UNK
     Route: 065
  2. TAXOTERE [Suspect]
     Active Substance: DOCETAXEL
     Indication: CHEMOTHERAPY
     Dosage: UNK
     Route: 042

REACTIONS (9)
  - Cerebral infarction [Unknown]
  - Aphasia [Unknown]
  - Trousseau^s syndrome [Unknown]
  - Pain in extremity [Unknown]
  - Cerebellar infarction [Unknown]
  - Interstitial lung disease [Unknown]
  - Dyscalculia [Unknown]
  - Decreased appetite [Unknown]
  - Phlebitis [Unknown]
